FAERS Safety Report 18947701 (Version 1)
Quarter: 2021Q1

REPORT INFORMATION
  Report Type: Spontaneous
  Country: US (occurrence: US)
  Receive Date: 20210226
  Receipt Date: 20210226
  Transmission Date: 20210420
  Serious: No
  Sender: FDA-Public Use
  Company Number: US-MYLANLABS-2021M1010188

PATIENT
  Sex: Female

DRUGS (1)
  1. ELETRIPTAN. [Suspect]
     Active Substance: ELETRIPTAN
     Indication: MIGRAINE
     Dosage: UNK
     Route: 065

REACTIONS (3)
  - Packaging design issue [Unknown]
  - Frustration tolerance decreased [Unknown]
  - Migraine [Unknown]
